FAERS Safety Report 6094778-1 (Version None)
Quarter: 2009Q1

REPORT INFORMATION
  Report Type: 
  Country: None (occurrence: None)
  Receive Date: 20090225
  Receipt Date: 20090210
  Transmission Date: 20090719
  Serious: Yes (Other)
  Sender: FDA-Public Use
  Company Number: 038180

PATIENT
  Age: 22 Year
  Sex: Female

DRUGS (3)
  1. CLARAVIS [Suspect]
     Dosage: 60 MG, QD, ORAL
     Route: 048
     Dates: start: 20081023
  2. SOTRET [Suspect]
     Dosage: 60 MG, QD, ORAL
     Route: 048
     Dates: start: 20080827
  3. ORAL CONTRACEPTIVE NOS (ORAL CONTRACEPTIVE NOS) [Concomitant]

REACTIONS (7)
  - ABORTION SPONTANEOUS [None]
  - CHAPPED LIPS [None]
  - DEPRESSION [None]
  - DRY SKIN [None]
  - FATIGUE [None]
  - HAIR TEXTURE ABNORMAL [None]
  - UNINTENDED PREGNANCY [None]
